FAERS Safety Report 7583590-X (Version None)
Quarter: 2011Q2

REPORT INFORMATION
  Report Type: 
  Country: None (occurrence: None)
  Receive Date: 20110630
  Receipt Date: 20110207
  Transmission Date: 20111010
  Serious: Yes (Other)
  Sender: FDA-Public Use
  Company Number: A0912268A

PATIENT
  Age: 85 Year
  Sex: Male

DRUGS (14)
  1. ADVAIR DISKUS 100/50 [Suspect]
     Indication: CHRONIC OBSTRUCTIVE PULMONARY DISEASE
     Dosage: 1PUFF TWICE PER DAY
     Route: 055
     Dates: start: 20110204, end: 20110206
  2. ALBUTEROL [Concomitant]
  3. TYLENOL ES [Concomitant]
  4. NITROGLYCERIN [Concomitant]
  5. IPRATROPIUM BROMIDE [Concomitant]
  6. FUROSEMIDE [Concomitant]
  7. ZETIA [Concomitant]
  8. ASPIRIN [Concomitant]
  9. MEVACOR [Concomitant]
  10. METOPROLOL TARTRATE [Concomitant]
  11. INSULIN [Concomitant]
  12. ADVAIR DISKUS 100/50 [Suspect]
     Dosage: 1PUFF TWICE PER DAY
     Route: 055
     Dates: start: 20010101
  13. PRANDIN [Concomitant]
  14. PLAVIX [Concomitant]

REACTIONS (4)
  - APHAGIA [None]
  - DECREASED APPETITE [None]
  - CHEST DISCOMFORT [None]
  - CHEST PAIN [None]
